FAERS Safety Report 13485125 (Version 1)
Quarter: 2017Q2

REPORT INFORMATION
  Report Type: Spontaneous
  Country: US (occurrence: US)
  Receive Date: 20170426
  Receipt Date: 20170426
  Transmission Date: 20170830
  Serious: Yes (Other)
  Sender: FDA-Public Use
  Company Number: None

PATIENT
  Age: 75 Year
  Sex: Male
  Weight: 82.63 kg

DRUGS (7)
  1. ASPRIN [Concomitant]
     Active Substance: ASPIRIN
  2. AVAPRO [Concomitant]
     Active Substance: IRBESARTAN
  3. C500 [Concomitant]
  4. OMEPRAZOLE. [Concomitant]
     Active Substance: OMEPRAZOLE
  5. ELIQUIS [Suspect]
     Active Substance: APIXABAN
     Indication: THROMBOSIS
     Route: 048
     Dates: start: 20170216, end: 20170306
  6. LEVOTHROID [Concomitant]
     Active Substance: LEVOTHYROXINE SODIUM
  7. SOLALOL [Concomitant]

REACTIONS (2)
  - Liver disorder [None]
  - Pruritus [None]

NARRATIVE: CASE EVENT DATE: 20170216
